FAERS Safety Report 7304785-6 (Version None)
Quarter: 2011Q1

REPORT INFORMATION
  Report Type: 
  Country: None (occurrence: None)
  Receive Date: 20110222
  Receipt Date: 20110215
  Transmission Date: 20110831
  Serious: No
  Sender: FDA-Public Use
  Company Number: US-PFIZER INC-2010162868

PATIENT
  Age: 68 Year
  Sex: Female
  Weight: 104.33 kg

DRUGS (2)
  1. ADVIL [Suspect]
     Indication: PLANTAR FASCIITIS
     Dosage: 3 LIQUIGELS, DAILY
     Route: 048
  2. ADVIL [Suspect]
     Indication: PAIN IN EXTREMITY

REACTIONS (1)
  - ABDOMINAL PAIN UPPER [None]
